FAERS Safety Report 18435807 (Version 1)
Quarter: 2020Q4

REPORT INFORMATION
  Report Type: Other
  Country: ES (occurrence: ES)
  Receive Date: 20201028
  Receipt Date: 20201028
  Transmission Date: 20210114
  Serious: Yes (Hospitalization, Other)
  Sender: FDA-Public Use
  Company Number: ES-GLENMARK PHARMACEUTICALS-2020GMK050104

PATIENT

DRUGS (8)
  1. CALCIFEDIOL [Concomitant]
     Active Substance: CALCIFEDIOL
     Indication: NEPHROPATHY
     Dosage: 16000 INTERNATIONAL UNIT (30 DAYS)
     Route: 048
     Dates: start: 20180425
  2. BENDAMUSTINE HYDROCHLORIDE. [Suspect]
     Active Substance: BENDAMUSTINE HYDROCHLORIDE
     Indication: NON-HODGKIN^S LYMPHOMA
     Dosage: 150 MILLIGRAM (28 DAYS)
     Route: 042
     Dates: start: 20191210, end: 20200204
  3. NISTATINA [Concomitant]
     Active Substance: NYSTATIN
     Indication: PROSTATE CANCER
     Dosage: 500000 INTERNATIONAL UNIT, QID (EVERY 6 HOURS)
     Route: 048
     Dates: start: 20200116
  4. MANIDIPINO [Concomitant]
     Active Substance: MANIDIPINE
     Indication: HYPERTENSION
     Dosage: 5 MILLIGRAM, OD (24 HOURS)
     Route: 048
     Dates: start: 20191008
  5. METAMIZOL [Concomitant]
     Active Substance: METAMIZOLE SODIUM
     Indication: PRODUCT USED FOR UNKNOWN INDICATION
     Dosage: 575 MILLIGRAM, BID (12 HOURS)
     Route: 048
     Dates: start: 20181009
  6. ACIDO FOLICO [FOLIC ACID] [Concomitant]
     Active Substance: FOLIC ACID
     Indication: ANAEMIA FOLATE DEFICIENCY
     Dosage: 5 MILLIGRAM (48 HOURS)
     Route: 048
     Dates: start: 20190130
  7. TRAMADOL/PARACETAMOL [Concomitant]
     Active Substance: ACETAMINOPHEN\TRAMADOL
     Indication: PRODUCT USED FOR UNKNOWN INDICATION
     Dosage: 1 DOSAGE FORM, BID (12 HOURS)
     Route: 048
     Dates: start: 20190408
  8. OMEPRAZOL [OMEPRAZOLE] [Concomitant]
     Active Substance: OMEPRAZOLE
     Indication: BACK PAIN
     Dosage: 20 MILLIGRAM, OD (24 HOURS)
     Route: 048
     Dates: start: 20100717

REACTIONS (1)
  - Febrile neutropenia [Recovered/Resolved]

NARRATIVE: CASE EVENT DATE: 20200213
